FAERS Safety Report 24940663 (Version 1)
Quarter: 2025Q1

REPORT INFORMATION
  Report Type: Spontaneous
  Country: US (occurrence: US)
  Receive Date: 20250207
  Receipt Date: 20250207
  Transmission Date: 20250409
  Serious: No
  Sender: CSL BEHRING
  Company Number: US-BEH-2025193604

PATIENT
  Sex: Male

DRUGS (4)
  1. PRIVIGEN [Suspect]
     Active Substance: HUMAN IMMUNOGLOBULIN G
     Indication: Hypogammaglobulinaemia
     Dosage: 10 G, QW (STRENGTH 10GM/VL)
     Route: 042
     Dates: start: 202204
  2. PRIVIGEN [Suspect]
     Active Substance: HUMAN IMMUNOGLOBULIN G
     Dosage: 20 G, QW (STRENGTH 20GM/VL)
     Route: 042
     Dates: start: 202204
  3. DIPHENHYDRAMINE [Concomitant]
     Active Substance: DIPHENHYDRAMINE
     Indication: Hypersensitivity
  4. DIPHENHYDRAMINE [Concomitant]
     Active Substance: DIPHENHYDRAMINE
     Indication: Hypersensitivity

REACTIONS (3)
  - Headache [Recovered/Resolved]
  - Panic attack [Unknown]
  - Fatigue [Unknown]
